FAERS Safety Report 12983427 (Version 1)
Quarter: 2016Q4

REPORT INFORMATION
  Report Type: Report from Study
  Country: NL (occurrence: NL)
  Receive Date: 20161129
  Receipt Date: 20161129
  Transmission Date: 20170207
  Serious: Yes (Death, Life-Threatening)
  Sender: FDA-Public Use
  Company Number: NL-TEVA-714188ISR

PATIENT
  Age: 62 Year
  Sex: Female

DRUGS (23)
  1. VINCRISTINE [Suspect]
     Active Substance: VINCRISTINE
     Indication: DIFFUSE LARGE B-CELL LYMPHOMA
     Dosage: 1 MILLIGRAM DAILY;
     Route: 042
     Dates: start: 20130528, end: 20130528
  2. FLUCONAZOLE. [Concomitant]
     Active Substance: FLUCONAZOLE
     Dosage: 200 MILLIGRAM DAILY;
     Route: 048
     Dates: start: 20130527, end: 20130602
  3. COTRIMOXAZOLE [Concomitant]
     Active Substance: SULFAMETHOXAZOLE\TRIMETHOPRIM
     Indication: PROPHYLAXIS
     Dosage: 480 MILLIGRAM DAILY;
     Route: 048
     Dates: start: 20130414
  4. RITUXIMAB [Suspect]
     Active Substance: RITUXIMAB
     Dosage: ONCE DAILY PER CYCLE
     Route: 058
     Dates: start: 20130528, end: 20130528
  5. GRANISETRON [Concomitant]
     Active Substance: GRANISETRON
     Indication: PROPHYLAXIS
     Route: 048
     Dates: start: 20130514
  6. VINCRISTINE [Suspect]
     Active Substance: VINCRISTINE
     Dosage: STOPPED
     Route: 042
     Dates: start: 20130514
  7. DOXORUBICIN [Suspect]
     Active Substance: DOXORUBICIN
     Indication: DIFFUSE LARGE B-CELL LYMPHOMA
     Dosage: 105 MILLIGRAM DAILY;
     Route: 042
     Dates: start: 20130528, end: 20130528
  8. DOXORUBICIN [Suspect]
     Active Substance: DOXORUBICIN
     Dosage: STOPPED
     Route: 042
     Dates: start: 20130514
  9. CYCLOPHOSPHAMIDE. [Suspect]
     Active Substance: CYCLOPHOSPHAMIDE
     Dosage: ONCE DAILY PER CYCLE
     Route: 042
     Dates: start: 20130528, end: 20130528
  10. NEULASTA [Concomitant]
     Active Substance: PEGFILGRASTIM
     Route: 058
     Dates: start: 20130515, end: 20130515
  11. NEULASTA [Concomitant]
     Active Substance: PEGFILGRASTIM
     Route: 058
     Dates: start: 20130529, end: 20130529
  12. PANTOPRAZOLE [Concomitant]
     Active Substance: PANTOPRAZOLE SODIUM
     Route: 048
  13. CLEMASTINE [Concomitant]
     Active Substance: CLEMASTINE
     Indication: PROPHYLAXIS
     Dosage: STOPPED
     Route: 042
     Dates: start: 20130514
  14. ALLOPURINOL. [Concomitant]
     Active Substance: ALLOPURINOL
     Indication: PROPHYLAXIS
     Dosage: 300 MILLIGRAM DAILY;
     Route: 048
     Dates: start: 20130508, end: 20130602
  15. LIDOCAINE. [Concomitant]
     Active Substance: LIDOCAINE
     Dosage: 30 ML DAILY; STOPPED
     Route: 048
     Dates: start: 20130530
  16. PARACETAMOL [Concomitant]
     Active Substance: ACETAMINOPHEN
     Dosage: STOPPED
     Route: 048
     Dates: start: 20130514
  17. MOVICOLON [Concomitant]
     Active Substance: POLYETHYLENE GLYCOL 3350\POTASSIUM CHLORIDE\SODIUM BICARBONATE\SODIUM CHLORIDE
     Dosage: SACHET
     Dates: start: 20130514, end: 20130604
  18. PREDNISONE. [Suspect]
     Active Substance: PREDNISONE
     Indication: DIFFUSE LARGE B-CELL LYMPHOMA
     Dosage: 500 UNITS
     Route: 042
     Dates: start: 20130514
  19. CYCLOPHOSPHAMIDE. [Suspect]
     Active Substance: CYCLOPHOSPHAMIDE
     Indication: DIFFUSE LARGE B-CELL LYMPHOMA
     Dosage: ONCE DAILY PER CYCLE
     Route: 042
     Dates: start: 20130528, end: 20130528
  20. ORAMORPH [Concomitant]
     Active Substance: MORPHINE SULFATE
     Dosage: 25 DAYS
     Route: 048
  21. METOCLOPRAMIDE. [Concomitant]
     Active Substance: METOCLOPRAMIDE
     Dosage: STOPPED
     Route: 048
     Dates: start: 20130514
  22. PREDNISONE. [Suspect]
     Active Substance: PREDNISONE
     Dosage: DATE OF LAST DOSE PRIOR TO THE SAE: 28-MAY-2013
     Route: 042
     Dates: start: 20130528
  23. RITUXIMAB [Suspect]
     Active Substance: RITUXIMAB
     Indication: DIFFUSE LARGE B-CELL LYMPHOMA
     Route: 042
     Dates: start: 20130514

REACTIONS (4)
  - Herpes simplex hepatitis [Not Recovered/Not Resolved]
  - Hepatic failure [Fatal]
  - Hepatic enzyme increased [Not Recovered/Not Resolved]
  - Febrile neutropenia [Not Recovered/Not Resolved]

NARRATIVE: CASE EVENT DATE: 20130602
